FAERS Safety Report 20083050 (Version 1)
Quarter: 2021Q4

REPORT INFORMATION
  Report Type: Spontaneous
  Country: US (occurrence: US)
  Receive Date: 20211117
  Receipt Date: 20211117
  Transmission Date: 20220303
  Serious: Yes (Other)
  Sender: FDA-Public Use
  Company Number: US-ANIPHARMA-2021-US-024180

PATIENT
  Age: 47 Year
  Sex: Male

DRUGS (2)
  1. HYDROCORTISONE [Suspect]
     Active Substance: HYDROCORTISONE
     Indication: Colitis ulcerative
     Dosage: 100 MG EVERY NIGHT
     Route: 054
  2. MESALAMINE [Concomitant]
     Active Substance: MESALAMINE
     Dosage: 1200 MG DAILY
     Route: 054

REACTIONS (1)
  - Chorioretinopathy [Recovered/Resolved]
